FAERS Safety Report 6802910-4 (Version None)
Quarter: 2010Q2

REPORT INFORMATION
  Report Type: 
  Country: None (occurrence: None)
  Receive Date: 20100628
  Receipt Date: 20100618
  Transmission Date: 20101027
  Serious: Yes (Other)
  Sender: FDA-Public Use
  Company Number: PHHY2010JP40287

PATIENT
  Age: 73 Year
  Sex: Female

DRUGS (8)
  1. DICLOFENAC SODIUM [Suspect]
     Indication: PAIN
     Route: 048
  2. ACYCLOVIR [Concomitant]
     Indication: HERPES ZOSTER
     Dosage: 750 MG
  3. PENTAZOCINE [Concomitant]
     Indication: PAIN
     Dosage: UNK
  4. KETOPROFEN [Concomitant]
     Indication: PAIN
     Dosage: UNK
  5. LIDOCAINE HYDROCHLORIDE [Concomitant]
     Indication: PAIN
     Dosage: UNK
     Route: 008
  6. LOXOPROFEN SODIUM [Concomitant]
     Indication: PAIN
     Dosage: UNK
  7. GABAPENTIN [Concomitant]
     Indication: PAIN
     Dosage: UNK
     Route: 048
  8. AMITRIPTYLINE HYDROCHLORIDE [Concomitant]
     Indication: PAIN
     Dosage: UNK
     Route: 048

REACTIONS (1)
  - HERPES ZOSTER INFECTION NEUROLOGICAL [None]
